FAERS Safety Report 7087887-1 (Version None)
Quarter: 2010Q4

REPORT INFORMATION
  Report Type: 
  Country: None (occurrence: None)
  Receive Date: 20101108
  Receipt Date: 20101028
  Transmission Date: 20110411
  Serious: Yes (Hospitalization)
  Sender: FDA-Public Use
  Company Number: US-US-EMD SERONO, INC.-232400J09USA

PATIENT
  Sex: Female
  Weight: 105 kg

DRUGS (3)
  1. REBIF [Suspect]
     Indication: MULTIPLE SCLEROSIS
     Route: 058
     Dates: start: 20031027, end: 20090512
  2. CELLCEPT [Suspect]
     Indication: MULTIPLE SCLEROSIS
     Route: 048
     Dates: end: 20090511
  3. PREDNISONE [Concomitant]
     Indication: MULTIPLE SCLEROSIS
     Route: 048
     Dates: end: 20090512

REACTIONS (1)
  - WOUND INFECTION STAPHYLOCOCCAL [None]
